FAERS Safety Report 7563815-7 (Version None)
Quarter: 2011Q2

REPORT INFORMATION
  Report Type: 
  Country: None (occurrence: None)
  Receive Date: 20110615
  Receipt Date: 20110601
  Transmission Date: 20111010
  Serious: Yes (Other)
  Sender: FDA-Public Use
  Company Number: NL-1186501

PATIENT
  Age: 61 Year
  Sex: Male
  Weight: 75 kg

DRUGS (3)
  1. TRAVATAN [Suspect]
     Indication: GLAUCOMA
     Dosage: 1 GT QD OU OPHTHALMIC
     Route: 047
     Dates: start: 20110310
  2. IBUPROFEN [Concomitant]
  3. COLCHICINE [Concomitant]

REACTIONS (2)
  - CONDITION AGGRAVATED [None]
  - GOUT [None]
